FAERS Safety Report 7714050-0 (Version None)
Quarter: 2011Q3

REPORT INFORMATION
  Report Type: 
  Country: None (occurrence: None)
  Receive Date: 20110826
  Receipt Date: 20110727
  Transmission Date: 20111222
  Serious: Yes (Other)
  Sender: FDA-Public Use
  Company Number: PHHY2011JP42875

PATIENT
  Age: 80 Year
  Sex: Male

DRUGS (15)
  1. RASILEZ [Suspect]
     Indication: HYPERTENSION
     Dosage: 150 MG, UNK
     Route: 048
     Dates: start: 20110316, end: 20110405
  2. KETOPROFEN [Concomitant]
     Dosage: UNK UKN, UNK
     Route: 062
  3. MIGLITOL [Concomitant]
     Dosage: 150 MG, UNK
     Route: 048
  4. METFORMIN HCL [Concomitant]
     Dosage: 500 MG, UNK
     Route: 048
  5. LASIX [Concomitant]
     Dosage: 20 MG, UNK
     Route: 048
  6. ATELEC [Concomitant]
     Dosage: 20 MG, UNK
     Route: 048
  7. TAMSULOSIN HCL [Concomitant]
     Dosage: 1 DF, UNK
     Route: 048
  8. MUCOSTA [Concomitant]
     Dosage: 2 DF, UNK
     Route: 048
  9. SERMION [Concomitant]
     Dosage: 5 MG, UNK
     Route: 048
  10. RASILEZ [Suspect]
     Dosage: 300 MG, UNK
     Dates: start: 20110406, end: 20110427
  11. OPALMON [Concomitant]
     Dosage: 15 UG, UNK
     Route: 048
  12. MAGNESIUM OXIDE [Concomitant]
     Dosage: 3 DF, UNK
     Route: 048
  13. AMARYL [Concomitant]
     Dosage: 1 MG, UNK
     Route: 048
  14. FAMOTIDINE [Concomitant]
     Dosage: 20 MG, UNK
     Route: 048
  15. NEUROTROPIN [Concomitant]
     Dosage: 4 IU, UNK

REACTIONS (1)
  - HEPATIC FUNCTION ABNORMAL [None]
